FAERS Safety Report 23796670 (Version 1)
Quarter: 2024Q2

REPORT INFORMATION
  Report Type: Spontaneous
  Country: US (occurrence: US)
  Receive Date: 20240430
  Receipt Date: 20240430
  Transmission Date: 20240715
  Serious: No
  Sender: FDA-Public Use
  Company Number: US-JNJFOC-20240402304

PATIENT
  Sex: Female

DRUGS (2)
  1. RIVAROXABAN [Suspect]
     Active Substance: RIVAROXABAN
     Indication: Venous thrombosis
     Route: 048
     Dates: start: 2022
  2. RIVAROXABAN [Suspect]
     Active Substance: RIVAROXABAN
     Route: 048
     Dates: start: 2021

REACTIONS (7)
  - Back pain [Unknown]
  - Arthritis [Unknown]
  - Fatigue [Unknown]
  - Gait disturbance [Unknown]
  - Muscle tightness [Unknown]
  - Iron deficiency [Unknown]
  - Vitamin B12 deficiency [Unknown]
